FAERS Safety Report 6382090-2 (Version None)
Quarter: 2009Q3

REPORT INFORMATION
  Report Type: 
  Country: None (occurrence: None)
  Receive Date: 20090930
  Receipt Date: 20090921
  Transmission Date: 20100115
  Serious: Yes (Hospitalization)
  Sender: FDA-Public Use
  Company Number: PHEH2009US05462

PATIENT
  Sex: Male

DRUGS (3)
  1. EXJADE [Suspect]
     Indication: IRON OVERLOAD
     Dosage: 2 G, UNK
     Dates: start: 20060401
  2. NEUPOGEN [Concomitant]
     Indication: SECONDARY IMMUNODEFICIENCY
     Dosage: 480 UNK, BIW
  3. LEUKINE [Concomitant]
     Indication: SECONDARY IMMUNODEFICIENCY
     Dosage: 500 UNK, BIW

REACTIONS (2)
  - DEHYDRATION [None]
  - LUNG INFECTION PSEUDOMONAL [None]
